FAERS Safety Report 15017143 (Version 1)
Quarter: 2018Q2

REPORT INFORMATION
  Report Type: Spontaneous
  Country: US (occurrence: US)
  Receive Date: 20180523
  Receipt Date: 20180523
  Transmission Date: 20180711
  Serious: No
  Sender: FDA-Public Use
  Company Number: None

PATIENT
  Age: 68 Year
  Sex: Female

DRUGS (1)
  1. REPATHA [Suspect]
     Active Substance: EVOLOCUMAB
     Indication: HYPERCHOLESTEROLAEMIA
     Dosage: ?          OTHER FREQUENCY:Q FOR 2 WEEKS ;?
     Route: 058

REACTIONS (5)
  - Injection site swelling [None]
  - Feeling hot [None]
  - Pain [None]
  - Injection site reaction [None]
  - Pruritus [None]

NARRATIVE: CASE EVENT DATE: 20180507
